FAERS Safety Report 21883314 (Version 1)
Quarter: 2023Q1

REPORT INFORMATION
  Report Type: Spontaneous
  Country: US (occurrence: None)
  Receive Date: 20230118
  Receipt Date: 20230118
  Transmission Date: 20230418
  Serious: Yes (Hospitalization)
  Sender: FDA-Public Use
  Company Number: None

PATIENT
  Age: 73 Year
  Sex: Female
  Weight: 89 kg

DRUGS (3)
  1. TAXOL [Suspect]
     Active Substance: PACLITAXEL
     Dates: end: 20230104
  2. PERTUZUMAB [Suspect]
     Active Substance: PERTUZUMAB
     Dates: end: 20230104
  3. HERCEPTIN [Suspect]
     Active Substance: TRASTUZUMAB
     Dates: end: 20230104

REACTIONS (8)
  - Diarrhoea [None]
  - Asthenia [None]
  - Dysuria [None]
  - Pelvic pain [None]
  - Skin abrasion [None]
  - Fungal infection [None]
  - Urinary tract infection [None]
  - Klebsiella test positive [None]

NARRATIVE: CASE EVENT DATE: 20230109
